FAERS Safety Report 10528225 (Version 1)
Quarter: 2014Q4

REPORT INFORMATION
  Report Type: Spontaneous
  Country: NO (occurrence: NO)
  Receive Date: 20141020
  Receipt Date: 20141020
  Transmission Date: 20150528
  Serious: No
  Sender: FDA-Public Use
  Company Number: NO-JNJFOC-20141005637

PATIENT
  Age: 29 Year
  Sex: Female

DRUGS (2)
  1. DUROGESIC [Suspect]
     Active Substance: FENTANYL
     Indication: PAIN IN EXTREMITY
     Route: 062
  2. DUROGESIC [Suspect]
     Active Substance: FENTANYL
     Indication: PAIN IN EXTREMITY
     Route: 062

REACTIONS (4)
  - Application site pruritus [Unknown]
  - Inappropriate schedule of drug administration [Unknown]
  - Application site erythema [Unknown]
  - Application site pain [Unknown]
